FAERS Safety Report 4585729-7 (Version None)
Quarter: 2005Q1

REPORT INFORMATION
  Report Type: 
  Country: None (occurrence: None)
  Receive Date: 20050209
  Receipt Date: 20050128
  Transmission Date: 20050727
  Serious: Yes (Hospitalization)
  Sender: FDA-Public Use
  Company Number: 2004-03116

PATIENT
  Age: 73 Year
  Sex: Male

DRUGS (1)
  1. IMMUCYST (BCG - IT (CONNAUGHT)), AVENTIS PASTEUR LTD. [Suspect]
     Indication: BLADDER CANCER
     Dosage: 81.0 MG
     Route: 043
     Dates: start: 20040727, end: 20040915

REACTIONS (7)
  - ACID FAST BACILLI INFECTION [None]
  - DYSURIA [None]
  - INFECTION [None]
  - MYCOBACTERIAL INFECTION [None]
  - POLLAKIURIA [None]
  - PROSTATITIS [None]
  - URINARY RETENTION [None]
